FAERS Safety Report 6433488-5 (Version None)
Quarter: 2009Q4

REPORT INFORMATION
  Report Type: 
  Country: None (occurrence: None)
  Receive Date: 20091106
  Receipt Date: 20091106
  Transmission Date: 20100525
  Serious: No
  Sender: FDA-Public Use
  Company Number: None

PATIENT
  Sex: Female
  Weight: 56.7 kg

DRUGS (1)
  1. FOSAMAX [Suspect]
     Indication: OSTEOPOROSIS
     Dosage: 1 WEEKLY PO
     Route: 048
     Dates: start: 20070201, end: 20070805

REACTIONS (4)
  - ARTHRALGIA [None]
  - BONE PAIN [None]
  - DYSPNOEA [None]
  - MYALGIA [None]
